FAERS Safety Report 12564426 (Version 1)
Quarter: 2016Q3

REPORT INFORMATION
  Report Type: Spontaneous
  Country: US (occurrence: None)
  Receive Date: 20160715
  Receipt Date: 20160715
  Transmission Date: 20161109
  Serious: Yes (Hospitalization)
  Sender: FDA-Public Use
  Company Number: None

PATIENT
  Age: 51 Year
  Sex: Male
  Weight: 81.19 kg

DRUGS (11)
  1. METFORMIN [Suspect]
     Active Substance: METFORMIN HYDROCHLORIDE
  2. RAPAFLO [Concomitant]
     Active Substance: SILODOSIN
  3. TAMSULOSIN [Concomitant]
     Active Substance: TAMSULOSIN
  4. LOPAZA [Concomitant]
  5. ZYPREXA [Suspect]
     Active Substance: OLANZAPINE
     Dosage: 25MG 2 PILLS TWICE DAILY BY MOUTH
     Route: 048
     Dates: start: 20021023, end: 20031210
  6. ATORVASTATIN [Concomitant]
     Active Substance: ATORVASTATIN
  7. RISPERIDONE. [Concomitant]
     Active Substance: RISPERIDONE
  8. LOSARTAN POTASSIUM. [Concomitant]
     Active Substance: LOSARTAN POTASSIUM
  9. CENTRUM SILVER [Concomitant]
     Active Substance: MINERALS\VITAMINS
  10. OMEPRAZOLE. [Concomitant]
     Active Substance: OMEPRAZOLE
  11. TYLENOL [Concomitant]
     Active Substance: ACETAMINOPHEN

REACTIONS (5)
  - Diabetes mellitus [None]
  - Bedridden [None]
  - Arthritis [None]
  - Dizziness [None]
  - Cardiac disorder [None]

NARRATIVE: CASE EVENT DATE: 20100710
